FAERS Safety Report 14412702 (Version 4)
Quarter: 2018Q1

REPORT INFORMATION
  Report Type: Spontaneous
  Country: CA (occurrence: CA)
  Receive Date: 20180119
  Receipt Date: 20180323
  Transmission Date: 20180509
  Serious: Yes (Hospitalization, Other)
  Sender: FDA-Public Use
  Company Number: CA-CELLTRION INC.-2017CA011195

PATIENT

DRUGS (9)
  1. CIPROFLOXACIN. [Concomitant]
     Active Substance: CIPROFLOXACIN
     Dosage: UNK
     Route: 065
  2. INFLECTRA [Suspect]
     Active Substance: INFLIXIMAB-DYYB
     Indication: COLITIS ULCERATIVE
     Dosage: 400 MG, CYCLIC, Q 0,2,6 WEEKS, THEN EVERY 6 WEEKS
     Route: 042
     Dates: start: 20170808, end: 20171114
  3. SALOFALK                           /00747601/ [Concomitant]
     Active Substance: MESALAMINE
     Dosage: UNK
     Route: 065
     Dates: start: 2012
  4. INFLECTRA [Suspect]
     Active Substance: INFLIXIMAB-DYYB
     Dosage: UNK
     Route: 065
  5. INFLECTRA [Suspect]
     Active Substance: INFLIXIMAB-DYYB
     Dosage: UNK
     Route: 065
  6. INFLECTRA [Suspect]
     Active Substance: INFLIXIMAB-DYYB
     Dosage: 700 MG, CYCLIC (EVERY 8 WEEKS)
     Route: 042
     Dates: start: 20180306
  7. INFLECTRA [Suspect]
     Active Substance: INFLIXIMAB-DYYB
     Dosage: 700 MG, (10 MG/KG) EVERY 8 WEEKS
     Route: 042
     Dates: start: 20180109
  8. HUMIRA [Concomitant]
     Active Substance: ADALIMUMAB
     Dosage: UNK
     Route: 065
     Dates: start: 201602
  9. INFLECTRA [Suspect]
     Active Substance: INFLIXIMAB-DYYB
     Dosage: 700 MG, CYCLIC (EVERY 8 WEEKS)
     Route: 042

REACTIONS (21)
  - Incorrect drug administration duration [Unknown]
  - Headache [Recovered/Resolved]
  - Heart rate irregular [Unknown]
  - Flushing [Unknown]
  - Urticaria [Unknown]
  - Pruritus [Unknown]
  - Cough [Unknown]
  - Rash [Unknown]
  - Rash erythematous [Unknown]
  - Feeding disorder [Unknown]
  - Drug prescribing error [Unknown]
  - Nausea [Unknown]
  - Diarrhoea [Unknown]
  - Infusion related reaction [Unknown]
  - Fatigue [Unknown]
  - Chest discomfort [Unknown]
  - Chest pain [Unknown]
  - Drug hypersensitivity [Unknown]
  - Haematemesis [Unknown]
  - Drug ineffective [Unknown]
  - Dry throat [Unknown]

NARRATIVE: CASE EVENT DATE: 20170808
